FAERS Safety Report 4593870-8 (Version None)
Quarter: 2005Q1

REPORT INFORMATION
  Report Type: 
  Country: None (occurrence: None)
  Receive Date: 20050301
  Receipt Date: 20050218
  Transmission Date: 20050727
  Serious: Yes (Other)
  Sender: FDA-Public Use
  Company Number: US-ROCHE-396268

PATIENT
  Age: 15 Year
  Sex: Male
  Weight: 59 kg

DRUGS (3)
  1. ACCUTANE [Suspect]
     Indication: ACNE
     Route: 048
     Dates: start: 20040915, end: 20050214
  2. CONCERTA [Concomitant]
     Route: 048
  3. STRATTERA [Concomitant]
     Route: 048

REACTIONS (6)
  - ABNORMAL BEHAVIOUR [None]
  - ANGER [None]
  - CONFUSIONAL STATE [None]
  - DEPRESSION [None]
  - SUICIDAL IDEATION [None]
  - SUICIDE ATTEMPT [None]
